FAERS Safety Report 24250059 (Version 2)
Quarter: 2024Q4

REPORT INFORMATION
  Report Type: Spontaneous
  Country: US (occurrence: US)
  Receive Date: 20240826
  Receipt Date: 20241202
  Transmission Date: 20250115
  Serious: No
  Sender: LUPIN
  Company Number: US-LUPIN PHARMACEUTICALS INC.-2024-07461

PATIENT

DRUGS (1)
  1. ALBUTEROL SULFATE [Suspect]
     Active Substance: ALBUTEROL SULFATE
     Indication: Asthma
     Dosage: UNK (2 PUFFS EVERY 4 HOURS AS NEEDED)

REACTIONS (4)
  - Dyspnoea [Unknown]
  - Device deposit issue [Unknown]
  - Device delivery system issue [Unknown]
  - Drug dose omission by device [Unknown]
